FAERS Safety Report 8788747 (Version 1)
Quarter: 2012Q4

REPORT INFORMATION
  Report Type: 
  Country: CN (occurrence: CN)
  Receive Date: 20120915
  Receipt Date: 20120915
  Transmission Date: 20130627
  Serious: Yes (Other)
  Sender: FDA-Public Use
  Company Number: CN-ABBOTT-12P-035-0979510-00

PATIENT
  Age: 47 Year
  Sex: Female

DRUGS (2)
  1. DEPAKINE [Suspect]
     Indication: CRANIOPHARYNGIOMA
     Dosage: extended release
     Route: 048
     Dates: start: 20110427, end: 20110730
  2. PREDNISONE [Concomitant]
     Indication: PRODUCT USED FOR UNKNOWN INDICATION

REACTIONS (4)
  - Gamma-glutamyltransferase increased [Unknown]
  - Alanine aminotransferase increased [Unknown]
  - Hepatic function abnormal [Recovering/Resolving]
  - Aspartate aminotransferase increased [Unknown]
